FAERS Safety Report 8219224-0 (Version None)
Quarter: 2012Q1

REPORT INFORMATION
  Report Type: 
  Country: None (occurrence: None)
  Receive Date: 20120319
  Receipt Date: 20120308
  Transmission Date: 20120608
  Serious: Yes (Other)
  Sender: FDA-Public Use
  Company Number: LB-JNJFOC-20120209877

PATIENT
  Age: 45 Year
  Sex: Female

DRUGS (9)
  1. REMICADE [Suspect]
     Indication: ANKYLOSING SPONDYLITIS
     Route: 042
     Dates: start: 20120101
  2. REMICADE [Suspect]
     Route: 042
     Dates: start: 20120101
  3. REMICADE [Suspect]
     Route: 042
     Dates: start: 20090201, end: 20090601
  4. HUMIRA [Concomitant]
     Indication: PRODUCT USED FOR UNKNOWN INDICATION
     Dates: start: 20090801, end: 20100201
  5. NSAID [Concomitant]
     Dates: start: 20090801, end: 20100201
  6. REMICADE [Suspect]
     Route: 042
     Dates: start: 20120101
  7. REMICADE [Suspect]
     Route: 042
     Dates: start: 20090201, end: 20090601
  8. REMICADE [Suspect]
     Indication: CROHN'S DISEASE
     Route: 042
     Dates: start: 20120101
  9. NSAID [Concomitant]
     Dates: start: 20090201, end: 20090601

REACTIONS (6)
  - CROHN'S DISEASE [None]
  - HYPERSENSITIVITY [None]
  - ANKYLOSING SPONDYLITIS [None]
  - MYELODYSPLASTIC SYNDROME [None]
  - INFUSION RELATED REACTION [None]
  - FIBROMYALGIA [None]
